FAERS Safety Report 4579862-3 (Version None)
Quarter: 2005Q1

REPORT INFORMATION
  Report Type: 
  Country: None (occurrence: None)
  Receive Date: 20050214
  Receipt Date: 20050202
  Transmission Date: 20050727
  Serious: Yes (Hospitalization)
  Sender: FDA-Public Use
  Company Number: 200510429FR

PATIENT
  Age: 82 Year
  Sex: Male
  Weight: 70 kg

DRUGS (10)
  1. LASILIX RETARD [Suspect]
     Route: 048
  2. DICETEL [Suspect]
     Route: 048
     Dates: end: 20040904
  3. FONZYLANE [Suspect]
     Route: 048
     Dates: end: 20040904
  4. UN-ALFA [Suspect]
     Route: 048
     Dates: start: 20040815, end: 20040904
  5. TENORDATE [Suspect]
     Route: 048
     Dates: end: 20040904
  6. NUREFLEX [Suspect]
     Indication: OSTEOARTHRITIS
     Route: 048
     Dates: end: 20040904
  7. NASACORT [Concomitant]
     Route: 055
  8. PHYSIOTENS [Concomitant]
     Route: 048
  9. BRONCHODUAL [Concomitant]
     Route: 055
  10. XANAX [Concomitant]
     Route: 048

REACTIONS (6)
  - BLOOD CREATININE INCREASED [None]
  - HYPERKALAEMIA [None]
  - PEMPHIGOID [None]
  - PHLEBOTHROMBOSIS [None]
  - PULMONARY EMBOLISM [None]
  - SKIN EXFOLIATION [None]
